FAERS Safety Report 8496846-3 (Version None)
Quarter: 2012Q3

REPORT INFORMATION
  Report Type: 
  Country: None (occurrence: None)
  Receive Date: 20120709
  Receipt Date: 20120626
  Transmission Date: 20120928
  Serious: Yes (Hospitalization)
  Sender: FDA-Public Use
  Company Number: US-ELI_LILLY_AND_COMPANY-US201108000319

PATIENT
  Sex: Female

DRUGS (2)
  1. FORTEO [Suspect]
     Indication: OSTEOPOROSIS
     Dosage: 20 UG, QD
     Route: 058
     Dates: start: 20110618
  2. FORTEO [Suspect]
     Dosage: 20 UG, QD
     Route: 058

REACTIONS (2)
  - ROAD TRAFFIC ACCIDENT [None]
  - INJECTION SITE HAEMATOMA [None]
